FAERS Safety Report 8362690-0 (Version None)
Quarter: 2012Q1

REPORT INFORMATION
  Report Type: 
  Country: None (occurrence: None)
  Receive Date: 20120323
  Receipt Date: 20111220
  Transmission Date: 20120608
  Serious: Yes (Hospitalization, Other)
  Sender: FDA-Public Use
  Company Number: 163-21880-11113332

PATIENT
  Age: 76 Year
  Sex: Female
  Weight: 55.7924 kg

DRUGS (2)
  1. REVLIMID [Suspect]
     Indication: MULTIPLE MYELOMA
     Dosage: 10 MG, 1 IN 1 D, PO, 15 MG, QD X 21 DAYS, PO
     Route: 048
     Dates: start: 20110117
  2. REVLIMID [Suspect]
     Indication: MULTIPLE MYELOMA
     Dosage: 10 MG, 1 IN 1 D, PO, 15 MG, QD X 21 DAYS, PO
     Route: 048
     Dates: start: 20110201, end: 20111114

REACTIONS (3)
  - BRONCHITIS [None]
  - PNEUMONIA [None]
  - NEUTROPHIL COUNT DECREASED [None]
